FAERS Safety Report 20169541 (Version 7)
Quarter: 2022Q1

REPORT INFORMATION
  Report Type: Report from Study
  Country: FR (occurrence: FR)
  Receive Date: 20211210
  Receipt Date: 20220131
  Transmission Date: 20220423
  Serious: Yes (Death, Hospitalization, Other)
  Sender: FDA-Public Use
  Company Number: FR-CELGENE-FRA-20211200500

PATIENT
  Age: 72 Year
  Sex: Female
  Weight: 50 kg

DRUGS (3)
  1. ABECMA [Suspect]
     Active Substance: IDECABTAGENE VICLEUCEL
     Indication: Plasma cell myeloma
     Dosage: 395.5 X 10^6 CAR + T CELL
     Route: 041
     Dates: start: 20210831, end: 20210831
  2. CYCLOPHOSPHAMIDE [Suspect]
     Active Substance: CYCLOPHOSPHAMIDE
     Indication: Plasma cell myeloma
     Dosage: 300 MILLIGRAM/SQ. METER
     Route: 041
     Dates: start: 20210824, end: 20210826
  3. FLUDARABINE [Suspect]
     Active Substance: FLUDARABINE PHOSPHATE
     Indication: Plasma cell myeloma
     Dosage: 30 MILLIGRAM/SQ. METER
     Route: 041
     Dates: start: 20210824, end: 20210826

REACTIONS (8)
  - Plasma cell myeloma [Fatal]
  - Hypogammaglobulinaemia [Recovered/Resolved]
  - Cytopenia [Unknown]
  - Cutaneous mucormycosis [Recovered/Resolved]
  - Aneurysm [Recovered/Resolved]
  - Immune effector cell-associated neurotoxicity syndrome [Recovered/Resolved]
  - Cytokine release syndrome [Recovered/Resolved]
  - Thrombocytopenia [Unknown]

NARRATIVE: CASE EVENT DATE: 20210903
